FAERS Safety Report 7932741-3 (Version None)
Quarter: 2011Q4

REPORT INFORMATION
  Report Type: 
  Country: None (occurrence: None)
  Receive Date: 20111122
  Receipt Date: 20111116
  Transmission Date: 20120403
  Serious: Yes (Hospitalization, Other)
  Sender: FDA-Public Use
  Company Number: BR-ABBOTT-11P-020-0862052-00

PATIENT
  Sex: Female

DRUGS (1)
  1. HUMIRA [Suspect]
     Indication: RHEUMATOID ARTHRITIS

REACTIONS (14)
  - CONVULSION [None]
  - DYSSTASIA [None]
  - SPEECH DISORDER [None]
  - BRAIN NEOPLASM [None]
  - ILL-DEFINED DISORDER [None]
  - GANGRENE [None]
  - CEREBRAL THROMBOSIS [None]
  - SOMNOLENCE [None]
  - MENTAL IMPAIRMENT [None]
  - CEREBROVASCULAR ACCIDENT [None]
  - ABASIA [None]
  - CONFUSIONAL STATE [None]
  - LOSS OF CONSCIOUSNESS [None]
  - MOBILITY DECREASED [None]
